FAERS Safety Report 21456693 (Version 1)
Quarter: 2022Q4

REPORT INFORMATION
  Report Type: Report from Study
  Country: BE (occurrence: BE)
  Receive Date: 20221014
  Receipt Date: 20221014
  Transmission Date: 20230112
  Serious: Yes (Hospitalization)
  Sender: FDA-Public Use
  Company Number: BE-SUN PHARMACEUTICAL INDUSTRIES LTD-2022R1-359083

PATIENT
  Sex: Male
  Weight: 3010 kg

DRUGS (4)
  1. LITHIUM [Suspect]
     Active Substance: LITHIUM
     Indication: Bipolar disorder
     Dosage: 1500 MILLIGRAM, DAILY
     Route: 064
  2. HALOPERIDOL [Suspect]
     Active Substance: HALOPERIDOL
     Indication: Antipsychotic therapy
     Dosage: UNK
     Route: 064
  3. LAMOTRIGINE [Suspect]
     Active Substance: LAMOTRIGINE
     Indication: Antipsychotic therapy
     Dosage: UNK
     Route: 064
  4. LEVOTHYROXINE [Suspect]
     Active Substance: LEVOTHYROXINE
     Indication: Product used for unknown indication
     Dosage: UNK
     Route: 064

REACTIONS (1)
  - Foetal exposure during pregnancy [Unknown]
